FAERS Safety Report 19082127 (Version 2)
Quarter: 2021Q2

REPORT INFORMATION
  Report Type: Spontaneous
  Country: US (occurrence: US)
  Receive Date: 20210401
  Receipt Date: 20210409
  Transmission Date: 20210717
  Serious: No
  Sender: FDA-Public Use
  Company Number: NVSC2021US071536

PATIENT
  Sex: Female

DRUGS (1)
  1. XIIDRA [Suspect]
     Active Substance: LIFITEGRAST
     Indication: PRODUCT USED FOR UNKNOWN INDICATION
     Dosage: 0.2 (2 DROPS), BID
     Route: 065

REACTIONS (4)
  - Dyspepsia [Unknown]
  - Dry eye [Unknown]
  - Eye pain [Unknown]
  - Vision blurred [Unknown]
